FAERS Safety Report 8586549-9 (Version None)
Quarter: 2012Q3

REPORT INFORMATION
  Report Type: 
  Country: None (occurrence: None)
  Receive Date: 20120810
  Receipt Date: 20120802
  Transmission Date: 20120928
  Serious: Yes (Hospitalization, Other)
  Sender: FDA-Public Use
  Company Number: FR-ASTRAZENECA-2012SE55410

PATIENT
  Age: 77 Year
  Sex: Male

DRUGS (6)
  1. CANDESARTAN CILEXETIL AND HYDROCHLOROTHIAZIDE [Suspect]
     Indication: HYPERTENSION
     Dosage: 8+ 12.5 MG, DAILY
     Route: 048
     Dates: start: 20120521, end: 20120719
  2. ACETAMINOPHEN [Suspect]
     Route: 048
     Dates: start: 20120201, end: 20120719
  3. METEOSPASMYL [Concomitant]
     Route: 048
  4. DESLORATADINE [Suspect]
     Route: 048
     Dates: start: 20111201, end: 20120720
  5. VITAMIN D [Concomitant]
     Route: 048
  6. SARGENOR [Concomitant]
     Route: 048

REACTIONS (4)
  - DYSURIA [None]
  - HEPATIC CIRRHOSIS [None]
  - GENERAL PHYSICAL HEALTH DETERIORATION [None]
  - HEPATITIS [None]
